FAERS Safety Report 8513514 (Version 2)
Quarter: 2013Q1

REPORT INFORMATION
  Report Type: Spontaneous
  Country: US (occurrence: US)
  Receive Date: 20120416
  Receipt Date: 20130222
  Transmission Date: 20140127
  Serious: Yes (Other)
  Sender: FDA-Public Use
  Company Number: US-JNJFOC-20120403488

PATIENT
  Sex: Female
  Weight: 63.5 kg

DRUGS (8)
  1. STELARA [Suspect]
     Indication: PSORIATIC ARTHROPATHY
     Route: 058
     Dates: start: 20100406
  2. STELARA [Suspect]
     Indication: PSORIATIC ARTHROPATHY
     Route: 058
     Dates: start: 20120124
  3. STELARA [Suspect]
     Indication: PUSTULAR PSORIASIS
     Route: 058
     Dates: start: 20100406
  4. STELARA [Suspect]
     Indication: PUSTULAR PSORIASIS
     Route: 058
     Dates: start: 20120124
  5. ALL OTHER THERAPEUTIC PRODUCTS [Concomitant]
     Indication: PUSTULAR PSORIASIS
     Route: 061
  6. RESTASIS [Concomitant]
     Indication: DRY EYE
     Route: 047
  7. HYDROCHLOROTHIAZIDE TRIAMTERENE [Concomitant]
     Indication: HYPERTENSION
     Route: 048
  8. MELOXICAM [Concomitant]
     Route: 048

REACTIONS (2)
  - Migraine [Not Recovered/Not Resolved]
  - Off label use [Unknown]
